FAERS Safety Report 4829181-2 (Version None)
Quarter: 2005Q4

REPORT INFORMATION
  Report Type: 
  Country: None (occurrence: None)
  Receive Date: 20051028
  Receipt Date: 20050723
  Transmission Date: 20060501
  Serious: No
  Sender: FDA-Public Use
  Company Number: COT_0151_2005

PATIENT
  Age: 50 Year
  Sex: Male
  Weight: 93.8946 kg

DRUGS (2)
  1. VENTAVIS [Suspect]
     Indication: PULMONARY HYPERTENSION
     Dosage: 5 MCG VARIABLE IH
     Route: 055
  2. SILDENAFIL [Concomitant]

REACTIONS (2)
  - FACIAL PAIN [None]
  - FLUSHING [None]
